FAERS Safety Report 24315836 (Version 1)
Quarter: 2024Q3

REPORT INFORMATION
  Report Type: Spontaneous
  Country: AU (occurrence: AU)
  Receive Date: 20240913
  Receipt Date: 20240913
  Transmission Date: 20241017
  Serious: Yes (Hospitalization, Other)
  Sender: RANBAXY
  Company Number: AU-SUN PHARMACEUTICAL INDUSTRIES LTD-2024R1-467503

PATIENT
  Age: 7 Week

DRUGS (4)
  1. LABETALOL [Suspect]
     Active Substance: LABETALOL\LABETALOL HYDROCHLORIDE
     Indication: Hypertension
     Dosage: 100 MGXBID INCREASED TO 100MG X 3 TID
     Route: 064
     Dates: start: 20231101, end: 20240604
  2. SERTRALINE [Suspect]
     Active Substance: SERTRALINE HYDROCHLORIDE
     Indication: Depression
     Dosage: 150 MG
     Route: 064
     Dates: start: 2017
  3. SERTRALINE [Suspect]
     Active Substance: SERTRALINE HYDROCHLORIDE
     Dosage: 200 MG
     Route: 064
     Dates: start: 20230914
  4. METHYLDOPA [Concomitant]
     Active Substance: METHYLDOPA
     Indication: Hypertension
     Dosage: UNK
     Route: 064
     Dates: start: 20240501, end: 20240604

REACTIONS (9)
  - Cyanosis [Unknown]
  - Foetal exposure during pregnancy [Unknown]
  - Hypoglycaemia neonatal [Recovered/Resolved]
  - Hypothermia neonatal [Recovered/Resolved]
  - Neonatal hypoxia [Unknown]
  - Neonatal respiratory distress [Not Recovered/Not Resolved]
  - Neonatal tachypnoea [Unknown]
  - Stridor [Unknown]
  - Tremor neonatal [Recovered/Resolved]

NARRATIVE: CASE EVENT DATE: 20240604
